FAERS Safety Report 25917908 (Version 1)
Quarter: 2025Q4

REPORT INFORMATION
  Report Type: Spontaneous
  Country: CN (occurrence: CN)
  Receive Date: 20251014
  Receipt Date: 20251014
  Transmission Date: 20260117
  Serious: Yes (Life-Threatening, Other)
  Sender: ACCORD
  Company Number: CN-MLMSERVICE-20250922-PI655565-00249-1

PATIENT
  Age: 54 Year
  Sex: Male
  Weight: 44 kg

DRUGS (8)
  1. CAPECITABINE [Suspect]
     Active Substance: CAPECITABINE
     Indication: Colorectal cancer stage IV
     Dosage: CAPECITABINE 1000 MG/M2 ORALLY, TWICE DAILY FOR TWO WEEKS, (1 CYCLE)
     Route: 048
     Dates: start: 20231020
  2. OXALIPLATIN [Suspect]
     Active Substance: OXALIPLATIN
     Indication: Colorectal cancer stage IV
     Dosage: OXALIPLATIN 130 MG/M2 VIA IV; FOLLOWED BY A ONE-WEEK(1 CYCLE)
     Dates: start: 20231020
  3. CAPECITABINE [Suspect]
     Active Substance: CAPECITABINE
     Indication: Metastases to muscle
     Dosage: CAPECITABINE 1000 MG/M2 ORALLY, TWICE DAILY FOR TWO WEEKS, (1 CYCLE)
     Route: 048
     Dates: start: 20231020
  4. CAPECITABINE [Suspect]
     Active Substance: CAPECITABINE
     Indication: Metastases to pelvis
     Dosage: CAPECITABINE 1000 MG/M2 ORALLY, TWICE DAILY FOR TWO WEEKS, (1 CYCLE)
     Route: 048
     Dates: start: 20231020
  5. CAPECITABINE [Suspect]
     Active Substance: CAPECITABINE
     Indication: Metastases to lymph nodes
     Dosage: CAPECITABINE 1000 MG/M2 ORALLY, TWICE DAILY FOR TWO WEEKS, (1 CYCLE)
     Route: 048
     Dates: start: 20231020
  6. OXALIPLATIN [Suspect]
     Active Substance: OXALIPLATIN
     Indication: Metastases to pelvis
     Dosage: OXALIPLATIN 130 MG/M2 VIA IV; FOLLOWED BY A ONE-WEEK(1 CYCLE)
     Dates: start: 20231020
  7. OXALIPLATIN [Suspect]
     Active Substance: OXALIPLATIN
     Indication: Metastases to lymph nodes
     Dosage: OXALIPLATIN 130 MG/M2 VIA IV; FOLLOWED BY A ONE-WEEK(1 CYCLE)
     Dates: start: 20231020
  8. OXALIPLATIN [Suspect]
     Active Substance: OXALIPLATIN
     Indication: Metastases to muscle
     Dosage: OXALIPLATIN 130 MG/M2 VIA IV; FOLLOWED BY (1 CYCLE)
     Dates: start: 20231020

REACTIONS (2)
  - Myelosuppression [Unknown]
  - Gastrointestinal disorder [Unknown]

NARRATIVE: CASE EVENT DATE: 20230101
